FAERS Safety Report 11369042 (Version 4)
Quarter: 2015Q4

REPORT INFORMATION
  Report Type: Report from Study
  Country: KE (occurrence: KE)
  Receive Date: 20150812
  Receipt Date: 20151116
  Transmission Date: 20160304
  Serious: Yes (Death, Hospitalization)
  Sender: FDA-Public Use
  Company Number: PHHY2015KE096650

PATIENT
  Age: 21 Year
  Sex: Female
  Weight: 73 kg

DRUGS (4)
  1. WARFARIN [Concomitant]
     Active Substance: WARFARIN
     Indication: THROMBOSIS
     Dosage: 5 G, QD
     Route: 048
     Dates: start: 20150730, end: 20150804
  2. GLIVEC [Suspect]
     Active Substance: IMATINIB MESYLATE
     Indication: CHRONIC MYELOID LEUKAEMIA
     Dosage: 400 MG, UNK
     Route: 065
     Dates: start: 20150721, end: 20150801
  3. TRAMADOL. [Concomitant]
     Active Substance: TRAMADOL
     Indication: PAIN
     Dosage: 100 G, TID (8 HOURLY)
     Route: 048
     Dates: start: 20150730, end: 20150804
  4. TASIGNA [Suspect]
     Active Substance: NILOTINIB
     Indication: CHRONIC MYELOID LEUKAEMIA
     Dosage: 800 MG, UNK
     Route: 048
     Dates: start: 20150721, end: 20150803

REACTIONS (2)
  - Pulmonary embolism [Fatal]
  - Peripheral swelling [Fatal]

NARRATIVE: CASE EVENT DATE: 20150726
